FAERS Safety Report 7558050-2 (Version None)
Quarter: 2011Q2

REPORT INFORMATION
  Report Type: 
  Country: None (occurrence: None)
  Receive Date: 20110620
  Receipt Date: 20110616
  Transmission Date: 20111010
  Serious: Yes (Death)
  Sender: FDA-Public Use
  Company Number: PHHY2011GB52896

PATIENT
  Sex: Male

DRUGS (3)
  1. XELODA [Suspect]
     Dosage: UNK
  2. AVASTIN [Suspect]
     Dosage: UNK
  3. OXALIPLATIN [Suspect]
     Dosage: UNK

REACTIONS (1)
  - DEATH [None]
